FAERS Safety Report 7889017-2 (Version None)
Quarter: 2011Q4

REPORT INFORMATION
  Report Type: 
  Country: None (occurrence: None)
  Receive Date: 20111103
  Receipt Date: 20111028
  Transmission Date: 20120403
  Serious: Yes (Death, Hospitalization)
  Sender: FDA-Public Use
  Company Number: JP-ROCHE-766780

PATIENT
  Sex: Male
  Weight: 38 kg

DRUGS (13)
  1. AVASTIN [Suspect]
     Route: 041
     Dates: start: 20100730, end: 20100917
  2. FLUOROURACIL [Suspect]
     Route: 040
     Dates: start: 20100730, end: 20100901
  3. FLUOROURACIL [Suspect]
     Indication: RECTAL CANCER METASTATIC
     Route: 040
     Dates: start: 20090716, end: 20091225
  4. LEVOLEUCOVORIN CALCIUM [Concomitant]
     Route: 041
     Dates: start: 20100730, end: 20100917
  5. DEXAMETHASONE SODIUM PHOSPHATE [Concomitant]
  6. AVASTIN [Suspect]
     Indication: RECTAL CANCER METASTATIC
     Route: 041
     Dates: start: 20090930, end: 20100309
  7. FLUOROURACIL [Suspect]
     Route: 040
     Dates: start: 20100108, end: 20100309
  8. LEVOLEUCOVORIN CALCIUM [Concomitant]
     Route: 041
     Dates: start: 20090716, end: 20091225
  9. LOXONIN [Concomitant]
     Dosage: DOSE FORM: UNCERTANITY
  10. FLUOROURACIL [Suspect]
     Route: 040
     Dates: start: 20090716, end: 20091201
  11. FLUOROURACIL [Suspect]
     Route: 040
     Dates: start: 20100108, end: 20100301
  12. OXALIPLATIN [Suspect]
     Indication: RECTAL CANCER METASTATIC
     Route: 041
     Dates: start: 20090716, end: 20091225
  13. FLUOROURACIL [Suspect]
     Route: 040
     Dates: start: 20100730, end: 20100917

REACTIONS (5)
  - GASTROINTESTINAL PERFORATION [None]
  - HYPOAESTHESIA [None]
  - PALMAR-PLANTAR ERYTHRODYSAESTHESIA SYNDROME [None]
  - NEOPLASM MALIGNANT [None]
  - GASTROINTESTINAL ANASTOMOTIC LEAK [None]
